FAERS Safety Report 10663975 (Version 1)
Quarter: 2014Q4

REPORT INFORMATION
  Report Type: Spontaneous
  Country: US (occurrence: None)
  Receive Date: 20141217
  Receipt Date: 20141217
  Transmission Date: 20150529
  Serious: Yes (Hospitalization)
  Sender: FDA-Public Use
  Company Number: 001840090A

PATIENT
  Age: 14 Year
  Sex: Female

DRUGS (2)
  1. PROACTIV [Suspect]
     Active Substance: BENZOYL PEROXIDE
     Indication: ACNE
     Dosage: ONCE DERMAL
     Dates: start: 20091114
  2. PROACTIV SOLUTION REPAIRING TREATMENT [Suspect]
     Active Substance: BENZOYL PEROXIDE
     Indication: ACNE
     Dosage: ONCE DERMAL
     Dates: start: 20091114

REACTIONS (3)
  - Swelling face [None]
  - Dyspnoea [None]
  - Eye swelling [None]

NARRATIVE: CASE EVENT DATE: 20091114
